FAERS Safety Report 12921853 (Version 1)
Quarter: 2016Q4

REPORT INFORMATION
  Report Type: Other
  Country: US (occurrence: US)
  Receive Date: 20161108
  Receipt Date: 20161108
  Transmission Date: 20170207
  Serious: Yes (Hospitalization)
  Sender: FDA-Public Use
  Company Number: US-LUPIN PHARMACEUTICALS INC.-2016-04913

PATIENT
  Age: 41 Year
  Sex: Male

DRUGS (10)
  1. DIDANOSINE. [Suspect]
     Active Substance: DIDANOSINE
     Route: 065
  2. ATAZANAVIR [Suspect]
     Active Substance: ATAZANAVIR
     Indication: HIV INFECTION
     Route: 065
     Dates: start: 1999
  3. CEFTRIAXONE. [Suspect]
     Active Substance: CEFTRIAXONE
     Indication: URETHRITIS
     Route: 065
  4. AZITHROMYCIN ANHYDROUS. [Suspect]
     Active Substance: AZITHROMYCIN ANHYDROUS
     Indication: URETHRITIS
     Route: 065
  5. TENOFOVIR [Suspect]
     Active Substance: TENOFOVIR
     Route: 065
  6. RITONAVIR. [Suspect]
     Active Substance: RITONAVIR
     Indication: HIV INFECTION
     Route: 065
     Dates: start: 1999
  7. RITONAVIR. [Suspect]
     Active Substance: RITONAVIR
     Route: 065
  8. TENOFOVIR [Suspect]
     Active Substance: TENOFOVIR
     Indication: HIV INFECTION
     Route: 065
     Dates: start: 1999
  9. ATAZANAVIR [Suspect]
     Active Substance: ATAZANAVIR
     Route: 065
  10. DIDANOSINE. [Suspect]
     Active Substance: DIDANOSINE
     Indication: HIV INFECTION
     Route: 065
     Dates: start: 1999

REACTIONS (1)
  - Vanishing bile duct syndrome [Unknown]
